FAERS Safety Report 5477526-5 (Version None)
Quarter: 2007Q4

REPORT INFORMATION
  Report Type: 
  Country: None (occurrence: None)
  Receive Date: 20071001
  Receipt Date: 20070918
  Transmission Date: 20080405
  Serious: Yes (Other)
  Sender: FDA-Public Use
  Company Number: GXKR2007GB08162

PATIENT
  Age: 9 Month
  Sex: Male

DRUGS (1)
  1. CO-AMOXICLAV (NGX) (AMOXICILLIN, CLAVULANATE) SUSPENSION, 125 /5MG/ML [Suspect]
     Dates: start: 20070701

REACTIONS (9)
  - BODY TEMPERATURE FLUCTUATION [None]
  - DIARRHOEA [None]
  - DYSPNOEA [None]
  - EATING DISORDER [None]
  - INSOMNIA [None]
  - MALAISE [None]
  - MEDICATION ERROR [None]
  - SKIN DISCOLOURATION [None]
  - VOMITING [None]
